FAERS Safety Report 5147404-X (Version None)
Quarter: 2006Q4

REPORT INFORMATION
  Report Type: 
  Country: None (occurrence: None)
  Receive Date: 20061103
  Receipt Date: 20061030
  Transmission Date: 20070319
  Serious: Yes (Other)
  Sender: FDA-Public Use
  Company Number: HQWYE344222JUL04

PATIENT
  Age: 55 Year
  Sex: Female

DRUGS (1)
  1. PREMPRO [Suspect]

REACTIONS (4)
  - BREAST CANCER METASTATIC [None]
  - HEPATIC CYST [None]
  - OESTROGEN RECEPTOR ASSAY POSITIVE [None]
  - PROGESTERONE RECEPTOR ASSAY POSITIVE [None]
